FAERS Safety Report 25945971 (Version 4)
Quarter: 2025Q4

REPORT INFORMATION
  Report Type: Report from Study
  Country: US (occurrence: US)
  Receive Date: 20251021
  Receipt Date: 20251205
  Transmission Date: 20260118
  Serious: Yes (Hospitalization, Other)
  Sender: ABBVIE
  Company Number: US-ABBVIE-6509248

PATIENT
  Age: 93 Year
  Sex: Male

DRUGS (4)
  1. VYALEV [Suspect]
     Active Substance: FOSCARBIDOPA\FOSLEVODOPA
     Indication: Parkinson^s disease
     Route: 058
     Dates: start: 20250909, end: 202510
  2. VYALEV [Suspect]
     Active Substance: FOSCARBIDOPA\FOSLEVODOPA
     Dosage: FIRST ADMIN DATE: 2025?DOSE DECREASED
     Route: 058
  3. ASPIRIN [Concomitant]
     Active Substance: ASPIRIN
     Indication: Product used for unknown indication
  4. ATORVASTATIN [Concomitant]
     Active Substance: ATORVASTATIN
     Indication: Product used for unknown indication

REACTIONS (15)
  - Unresponsive to stimuli [Not Recovered/Not Resolved]
  - Somnolence [Not Recovered/Not Resolved]
  - Aneurysm [Not Recovered/Not Resolved]
  - Cerebrovascular accident [Not Recovered/Not Resolved]
  - Hypertension [Not Recovered/Not Resolved]
  - On and off phenomenon [Unknown]
  - Erythema [Unknown]
  - Catheter site haemorrhage [Not Recovered/Not Resolved]
  - Catheter site bruise [Not Recovered/Not Resolved]
  - Catheter site related reaction [Not Recovered/Not Resolved]
  - Hallucination [Not Recovered/Not Resolved]
  - Delusion [Not Recovered/Not Resolved]
  - Aggression [Recovering/Resolving]
  - Limb injury [Unknown]
  - Dyskinesia [Unknown]

NARRATIVE: CASE EVENT DATE: 20250101
